FAERS Safety Report 11363073 (Version 1)
Quarter: 2015Q3

REPORT INFORMATION
  Report Type: Spontaneous
  Country: US (occurrence: None)
  Receive Date: 20150807
  Receipt Date: 20150807
  Transmission Date: 20151125
  Serious: Yes (Hospitalization)
  Sender: FDA-Public Use
  Company Number: None

PATIENT
  Age: 41 Year
  Sex: Male
  Weight: 82.9 kg

DRUGS (9)
  1. OMEPRAZOLE (PRILOSEC) [Concomitant]
  2. SPIRONOLACTONE (ALDACTONE) [Concomitant]
  3. RECOMBIVAX HB, PF [Concomitant]
  4. HARVONI [Suspect]
     Active Substance: LEDIPASVIR\SOFOSBUVIR
     Indication: HEPATITIS C
     Dosage: 90-400MG
     Route: 048
     Dates: start: 20150411, end: 20150704
  5. CARVEDILOL (COREG) [Concomitant]
  6. MAGNESIUM OXIDE (MAG-OX) [Concomitant]
  7. LASIX [Concomitant]
     Active Substance: FUROSEMIDE
  8. COPEGUS [Suspect]
     Active Substance: RIBAVIRIN
     Indication: HEPATITIS C
     Route: 048
     Dates: start: 20150411, end: 20150603
  9. MILK THISTLE SEED EXTRACT [Concomitant]

REACTIONS (2)
  - Septic arthritis streptococcal [None]
  - Bacteraemia [None]

NARRATIVE: CASE EVENT DATE: 20150517
